FAERS Safety Report 10101126 (Version 1)
Quarter: 2014Q2

REPORT INFORMATION
  Report Type: Spontaneous
  Country: CH (occurrence: CH)
  Receive Date: 20140424
  Receipt Date: 20140424
  Transmission Date: 20141212
  Serious: Yes (Hospitalization, Other)
  Sender: FDA-Public Use
  Company Number: CH-009507513-1404CHE012032

PATIENT
  Age: 29 Year
  Sex: Female

DRUGS (4)
  1. MAXALT [Suspect]
     Indication: MIGRAINE
     Dosage: UNK
     Route: 048
  2. MAXALT [Suspect]
     Dosage: TOTAL DAILY DOSE 20 MG
     Route: 048
     Dates: start: 20131028, end: 20131028
  3. SERTRALINE HYDROCHLORIDE [Suspect]
     Indication: DEPRESSION
     Dosage: UNK
     Route: 048
  4. SERTRALINE HYDROCHLORIDE [Suspect]
     Dosage: TOTAL DAILY DOSE 100 MG
     Route: 048
     Dates: start: 20131028, end: 20131028

REACTIONS (5)
  - Muscle contractions involuntary [Unknown]
  - Hyperreflexia [Unknown]
  - Hypotension [Unknown]
  - Tachycardia [Unknown]
  - Tremor [Unknown]
